FAERS Safety Report 12764918 (Version 2)
Quarter: 2016Q3

REPORT INFORMATION
  Report Type: Spontaneous
  Country: FR (occurrence: FR)
  Receive Date: 20160921
  Receipt Date: 20160926
  Transmission Date: 20161109
  Serious: Yes (Hospitalization)
  Sender: FDA-Public Use
  Company Number: FR-CONCORDIA PHARMACEUTICALS INC.-GSH201609-004719

PATIENT
  Age: 78 Year
  Sex: Male

DRUGS (2)
  1. PLAQUENIL [Suspect]
     Active Substance: HYDROXYCHLOROQUINE SULFATE
     Indication: LUPUS-LIKE SYNDROME
     Route: 048
     Dates: start: 20160813, end: 20160818
  2. PREVISCAN [Concomitant]
     Active Substance: FLUINDIONE
     Dates: start: 2001, end: 201608

REACTIONS (2)
  - Purpura [Recovered/Resolved]
  - Photosensitivity reaction [Recovered/Resolved]

NARRATIVE: CASE EVENT DATE: 20160818
